FAERS Safety Report 8732777 (Version 2)
Quarter: 2012Q4

REPORT INFORMATION
  Report Type: 
  Country: US (occurrence: US)
  Receive Date: 20120820
  Receipt Date: 20120920
  Transmission Date: 20130627
  Serious: Yes (Other)
  Sender: FDA-Public Use
  Company Number: US-PFIZER INC-2012198893

PATIENT

DRUGS (1)
  1. AFINITOR [Suspect]
     Indication: NEUROENDOCRINE CARCINOMA METASTATIC
     Dosage: UNK

REACTIONS (1)
  - Renal failure [Recovering/Resolving]
